FAERS Safety Report 7952817-4 (Version None)
Quarter: 2011Q4

REPORT INFORMATION
  Report Type: 
  Country: None (occurrence: None)
  Receive Date: 20111201
  Receipt Date: 20111121
  Transmission Date: 20120403
  Serious: Yes (Hospitalization)
  Sender: FDA-Public Use
  Company Number: US-ELI_LILLY_AND_COMPANY-US201111007827

PATIENT
  Sex: Female

DRUGS (7)
  1. BENAZEPRIL HYDROCHLORIDE [Concomitant]
  2. FORTEO [Suspect]
     Indication: OSTEOPOROSIS
     Dosage: 20 UG, QD
     Dates: end: 20110701
  3. SPIRIVA [Concomitant]
  4. SINGULAIR [Concomitant]
  5. SYMBICORT [Concomitant]
  6. ALBUTEROL SULFATE [Concomitant]
  7. SIMVASTATIN [Concomitant]
     Dosage: 80 MG, UNKNOWN

REACTIONS (5)
  - TREMOR [None]
  - ASTHENIA [None]
  - SINUSITIS [None]
  - CHRONIC OBSTRUCTIVE PULMONARY DISEASE [None]
  - UPPER RESPIRATORY TRACT CONGESTION [None]
